FAERS Safety Report 8811001 (Version 1)
Quarter: 2012Q4

REPORT INFORMATION
  Report Type: 
  Country: US (occurrence: US)
  Receive Date: 20120927
  Receipt Date: 20120927
  Transmission Date: 20130627
  Serious: No
  Sender: FDA-Public Use
  Company Number: US-BAYER-2012-100411

PATIENT
  Sex: Female

DRUGS (1)
  1. MIRENA [Suspect]
     Dosage: 20 mcg/24hr, UNK
     Route: 015

REACTIONS (10)
  - Breast tenderness [None]
  - Vaginal discharge [None]
  - Pruritus [None]
  - Acne [None]
  - Fatigue [None]
  - Vitamin B1 deficiency [None]
  - Vitamin B12 deficiency [None]
  - Vitamin D deficiency [None]
  - Libido decreased [None]
  - Weight increased [None]
